FAERS Safety Report 9016085 (Version 8)
Quarter: 2014Q1

REPORT INFORMATION
  Report Type: Report from Study
  Country: BR (occurrence: BR)
  Receive Date: 20130116
  Receipt Date: 20140110
  Transmission Date: 20141002
  Serious: Yes (Hospitalization)
  Sender: FDA-Public Use
  Company Number: BR-VERTEX PHARMACEUTICALS INC.-2013-000711

PATIENT
  Age: 54 Year
  Sex: Male
  Weight: 60.9 kg

DRUGS (12)
  1. VX-950 (TELAPREVIR) [Suspect]
     Indication: HEPATITIS C
     Dosage: 2 DF, TID, TABLET
     Dates: start: 20121031, end: 20130108
  2. PEGASYS [Suspect]
     Indication: HEPATITIS C
     Dosage: DOSAGE FORM: INJECTION
     Route: 058
     Dates: start: 20121031, end: 20130109
  3. COPEGUS [Suspect]
     Indication: HEPATITIS C
     Dosage: DOSAGE FORM: TABLET, DOSE 2 IN MORNING AND 3 IN EVENING
     Route: 048
     Dates: start: 20121031, end: 20130108
  4. DEXTRAN 70 [Concomitant]
     Indication: CONJUNCTIVITIS
     Dosage: EVERY 4 HOURS
     Route: 047
     Dates: start: 20121114
  5. PANTOPRAZOLE [Concomitant]
     Indication: DYSPEPSIA
     Dosage: 20 MG, QD
     Route: 048
     Dates: start: 20121104
  6. HYPROMELLOSE [Concomitant]
     Indication: CONJUNCTIVITIS
     Dosage: EVERY 4 HOURS
     Route: 047
     Dates: start: 20121212
  7. CETAPHIL UNSPECIFIED [Concomitant]
     Indication: PRURITUS
     Dosage: 1 DF, BID
     Route: 061
     Dates: start: 20121213
  8. HYDROXYZINE [Concomitant]
     Indication: RASH
     Dosage: 25 MG, TID
     Route: 048
     Dates: start: 20130101, end: 20130109
  9. HYDROXYZINE [Concomitant]
     Dosage: 25 MG, QID
     Route: 048
     Dates: start: 20130101
  10. DESLORATADINE [Concomitant]
     Indication: RASH
     Dosage: 5 MG, QD
     Route: 048
     Dates: start: 20130109
  11. CORTICOSTEROID [Concomitant]
     Indication: RASH
     Dosage: 2 DF, BID
     Route: 061
     Dates: start: 20130103
  12. ERYTHROPOETIN [Concomitant]
     Indication: ANAEMIA
     Dosage: 12000 IU, QW
     Route: 058
     Dates: start: 20121226, end: 20130109

REACTIONS (1)
  - Rash [Recovered/Resolved]
